FAERS Safety Report 22265970 (Version 1)
Quarter: 2023Q2

REPORT INFORMATION
  Report Type: Spontaneous
  Country: FR (occurrence: FR)
  Receive Date: 20230428
  Receipt Date: 20230428
  Transmission Date: 20230721
  Serious: Yes (Hospitalization)
  Sender: FDA-Public Use
  Company Number: None

PATIENT
  Age: 55 Year
  Sex: Male
  Weight: 126.9 kg

DRUGS (8)
  1. PERINDOPRIL [Suspect]
     Active Substance: PERINDOPRIL
     Indication: Hypertension
     Dosage: 10 MG, FREQUENCY TIME: 1 DAY, THERAPY START DATE: ASKU
     Route: 065
     Dates: end: 20221010
  2. AMLODIPINE [Suspect]
     Active Substance: AMLODIPINE BESYLATE
     Indication: Hypertension
     Dosage: FREQUENCY TIME: 1 DAY, THERAPY START DATE: ASKU, 10 MG
     Route: 065
     Dates: end: 20221010
  3. AUGMENTIN [Concomitant]
     Active Substance: AMOXICILLIN\CLAVULANATE POTASSIUM
     Indication: Paronychia
     Dosage: FREQUENCY TIME: 1 TOTAL, 1 DF
     Route: 065
     Dates: start: 20221010, end: 20221010
  4. METFORMIN HYDROCHLORIDE [Concomitant]
     Active Substance: METFORMIN HYDROCHLORIDE
     Indication: Product used for unknown indication
     Dosage: FREQUENCY TIME: 1 DAY, THERAPY START AND END DATE: ASKU, 2 GRAM
     Route: 065
  5. ATORVASTATIN [Concomitant]
     Active Substance: ATORVASTATIN
     Indication: Product used for unknown indication
     Dosage: FREQUENCY TIME: 1 DAY, THERAPY START DATE: ASKU, 80 MG
     Route: 065
  6. EBASTINE [Concomitant]
     Active Substance: EBASTINE
     Indication: Product used for unknown indication
     Dosage: FREQUENCY TIME: 1 AS REQUIRED, THERAPY START DATE: ASKU, 1 DF
  7. KARDEGIC [Concomitant]
     Active Substance: ASPIRIN DL-LYSINE
     Indication: Product used for unknown indication
     Dosage: FREQUENCY TIME: 1 DAY, THERAPY START DATE: ASKU, 160 MG, IN SACHET
     Route: 065
  8. ESOMEPRAZOLE [Concomitant]
     Active Substance: ESOMEPRAZOLE
     Indication: Product used for unknown indication
     Dosage: FREQUENCY TIME: 1 DAY, THERAPY START DATE: ASKU, 20 MG
     Route: 065
     Dates: end: 20221010

REACTIONS (1)
  - Acute kidney injury [Recovered/Resolved]

NARRATIVE: CASE EVENT DATE: 20221010
